FAERS Safety Report 4842554-7 (Version None)
Quarter: 2005Q4

REPORT INFORMATION
  Report Type: 
  Country: None (occurrence: None)
  Receive Date: 20051129
  Receipt Date: 20051114
  Transmission Date: 20060501
  Serious: Yes (Hospitalization)
  Sender: FDA-Public Use
  Company Number: 2005002218

PATIENT
  Age: 51 Year
  Sex: Female

DRUGS (3)
  1. TARCEVA [Suspect]
     Indication: NON-SMALL CELL LUNG CANCER
     Dosage: 150 MG (QD), ORAL
     Route: 048
     Dates: start: 20050401
  2. SYNTHROID [Concomitant]
  3. CAPTOPRIL [Concomitant]

REACTIONS (6)
  - ABDOMINAL TENDERNESS [None]
  - CATHETER SITE HAEMORRHAGE [None]
  - CONSTIPATION [None]
  - GASTROINTESTINAL HAEMORRHAGE [None]
  - ORAL CANDIDIASIS [None]
  - THROMBOSIS [None]
